FAERS Safety Report 19773716 (Version 1)
Quarter: 2021Q3

REPORT INFORMATION
  Report Type: Spontaneous
  Country: US (occurrence: US)
  Receive Date: 20210901
  Receipt Date: 20210901
  Transmission Date: 20211014
  Serious: No
  Sender: FDA-Public Use
  Company Number: US-SA-2021SA285900

PATIENT
  Age: 65 Year
  Sex: Female

DRUGS (3)
  1. PIOGLITAZONE/METFORMIN [Concomitant]
     Active Substance: METFORMIN HYDROCHLORIDE\PIOGLITAZONE HYDROCHLORIDE
  2. DUPIXENT [Suspect]
     Active Substance: DUPILUMAB
     Indication: DERMATITIS ATOPIC
     Dosage: 300 MG, QOW
     Route: 058
  3. LEVOTHYROXINE. [Concomitant]
     Active Substance: LEVOTHYROXINE

REACTIONS (1)
  - Thyroid disorder [Unknown]
